FAERS Safety Report 21824759 (Version 1)
Quarter: 2023Q1

REPORT INFORMATION
  Report Type: Spontaneous
  Country: FR (occurrence: FR)
  Receive Date: 20230105
  Receipt Date: 20230105
  Transmission Date: 20230417
  Serious: Yes (Hospitalization, Other)
  Sender: FDA-Public Use
  Company Number: FR-DENTSPLY-2022SCDP000373

PATIENT
  Age: 82 Year
  Sex: Female
  Weight: 73 kg

DRUGS (13)
  1. MEPIVACAINE HYDROCHLORIDE [Suspect]
     Active Substance: MEPIVACAINE HYDROCHLORIDE
     Indication: Anaesthesia eye
     Dosage: 6 MILLILITER TOTAL 2% CARBOCAINE (0.4 G/20 ML) SOLUTION FOR INJECTION
     Route: 056
     Dates: start: 20221125, end: 20221125
  2. CEFUROXIME SODIUM [Suspect]
     Active Substance: CEFUROXIME SODIUM
     Indication: Infection prophylaxis
     Dosage: UNK
     Dates: start: 20221125, end: 20221125
  3. PROPRANOLOL [Suspect]
     Active Substance: PROPRANOLOL HYDROCHLORIDE
     Indication: Migraine
     Dosage: 160 MILLIGRAM A DAY
     Route: 048
     Dates: start: 20221130
  4. OCUFEN [Suspect]
     Active Substance: FLURBIPROFEN SODIUM
     Indication: Cataract operation
     Dosage: 3 DROP A DAY OF 0.03% OCUFEN EYE DROPS
     Dates: start: 20221125, end: 20221130
  5. TROPICAMIDE [Suspect]
     Active Substance: TROPICAMIDE
     Indication: Cataract operation
     Dosage: 3 DROP A DAY MYDRIATICUM  2 MG/0.4 ML EYE DROPS IN SINGLE-DOSE CONTAINERS
     Dates: start: 20221125, end: 20221130
  6. PROPOFOL [Suspect]
     Active Substance: PROPOFOL
     Indication: General anaesthesia
     Dosage: UNK
     Route: 042
     Dates: start: 20221125, end: 20221125
  7. PAROXETINE MESYLATE [Suspect]
     Active Substance: PAROXETINE MESYLATE
     Indication: Mixed anxiety and depressive disorder
     Dosage: 40 MILLIGRAM A DAY
     Route: 048
     Dates: start: 20221130
  8. IRBESARTAN [Suspect]
     Active Substance: IRBESARTAN
     Indication: Hypertension
     Dosage: 150 MILLIGRAM A DAY
     Route: 048
     Dates: start: 20221130
  9. DEXAMETHASONE\OXYTETRACYCLINE [Suspect]
     Active Substance: DEXAMETHASONE\OXYTETRACYCLINE
     Indication: Postoperative care
     Dosage: UNK STERDEX, OPHTHALMIC OINTMENT IN SINGLE-DOSE CONTAINER
     Dates: start: 20221125, end: 20221125
  10. ALPRAZOLAM [Concomitant]
     Active Substance: ALPRAZOLAM
     Indication: Product used for unknown indication
     Dosage: UNK
  11. OMEPRAZOLE [Concomitant]
     Active Substance: OMEPRAZOLE
     Indication: Product used for unknown indication
     Dosage: UNK
  12. ACETAMINOPHEN [Concomitant]
     Active Substance: ACETAMINOPHEN
     Indication: Product used for unknown indication
     Dosage: UNK
  13. CALCIUM CARBONATE\CHOLECALCIFEROL [Concomitant]
     Active Substance: CALCIUM CARBONATE\CHOLECALCIFEROL
     Indication: Product used for unknown indication
     Dosage: UNK

REACTIONS (2)
  - Acute kidney injury [Recovered/Resolved]
  - Confusional state [Recovered/Resolved]

NARRATIVE: CASE EVENT DATE: 20221127
